FAERS Safety Report 5298866-9 (Version None)
Quarter: 2007Q2

REPORT INFORMATION
  Report Type: 
  Country: None (occurrence: None)
  Receive Date: 20070417
  Receipt Date: 20070410
  Transmission Date: 20071010
  Serious: Yes (Life-Threatening, Hospitalization)
  Sender: FDA-Public Use
  Company Number: US-NOVOPROD-262646

PATIENT
  Age: 21 Year
  Sex: Female
  Weight: 68.027 kg

DRUGS (1)
  1. NOVOLOG [Suspect]
     Indication: DIABETES MELLITUS INSULIN-DEPENDENT
     Dosage: 50-60 IU, QD
     Route: 058
     Dates: start: 20020101

REACTIONS (1)
  - DIABETIC KETOACIDOSIS [None]
